FAERS Safety Report 24744770 (Version 1)
Quarter: 2024Q4

REPORT INFORMATION
  Report Type: Report from Study
  Country: NL (occurrence: NL)
  Receive Date: 20241217
  Receipt Date: 20241217
  Transmission Date: 20250114
  Serious: Yes (Hospitalization)
  Sender: MYLAN
  Company Number: None

PATIENT
  Age: 76 Year
  Sex: Female
  Weight: 80 kg

DRUGS (9)
  1. CARBIDOPA\LEVODOPA [Suspect]
     Active Substance: CARBIDOPA\LEVODOPA
     Indication: Parkinsonism
     Dosage: UNK
     Route: 048
     Dates: start: 20140224
  2. ROPINIROLE [Concomitant]
     Active Substance: ROPINIROLE
     Dosage: 4 MILLIGRAM (TABLET WITH CONTROLLED RELEASE, 4 MG (MILLIGRAM))
     Route: 048
  3. CALCIUMCARBONAT [Concomitant]
     Dosage: UNK
     Route: 065
  4. FOLIC ACID [Concomitant]
     Active Substance: FOLIC ACID
     Dosage: 0.5 MILLIGRAM
     Route: 048
  5. CLOPIDOGREL [Concomitant]
     Active Substance: CLOPIDOGREL BISULFATE
     Dosage: 75 MILLIGRAM
     Route: 048
  6. SIMVASTATIN [Concomitant]
     Active Substance: SIMVASTATIN
     Dosage: 40 MILLIGRAM
     Route: 048
  7. POLYETHYLENE GLYCOLS [Concomitant]
     Active Substance: POLYETHYLENE GLYCOLS
     Dosage: UNK
     Route: 065
  8. PANTOPRAZOLE SODIUM [Concomitant]
     Active Substance: PANTOPRAZOLE SODIUM
     Dosage: 40 MILLIGRAM (GASTRO-RESISTANT TABLET)
     Route: 048
  9. ACETAMINOPHEN [Concomitant]
     Active Substance: ACETAMINOPHEN
     Dosage: UNK
     Route: 065

REACTIONS (2)
  - Peripheral sensory neuropathy [Recovering/Resolving]
  - Vitamin B6 deficiency [Unknown]
